FAERS Safety Report 4908487-2 (Version None)
Quarter: 2006Q1

REPORT INFORMATION
  Report Type: 
  Country: None (occurrence: None)
  Receive Date: 20060210
  Receipt Date: 20050801
  Transmission Date: 20060701
  Serious: No
  Sender: FDA-Public Use
  Company Number: US-GLAXOSMITHKLINE-A0568488A

PATIENT
  Age: 33 Year
  Sex: Male

DRUGS (1)
  1. PAXIL CR [Suspect]
     Indication: PANIC DISORDER
     Dosage: 1TAB PER DAY
     Route: 048
     Dates: start: 20050730

REACTIONS (4)
  - BURNING SENSATION [None]
  - HYPOAESTHESIA [None]
  - PANIC ATTACK [None]
  - PARAESTHESIA [None]
